FAERS Safety Report 15331648 (Version 2)
Quarter: 2018Q3

REPORT INFORMATION
  Report Type: Spontaneous
  Country: US (occurrence: US)
  Receive Date: 20180829
  Receipt Date: 20180925
  Transmission Date: 20181010
  Serious: Yes (Other)
  Sender: FDA-Public Use
  Company Number: US-SA-2018SA231150

PATIENT
  Age: 70 Year
  Sex: Female

DRUGS (1)
  1. LANTUS SOLOSTAR [Suspect]
     Active Substance: INSULIN GLARGINE
     Indication: TYPE 2 DIABETES MELLITUS
     Dosage: 12?18, QD

REACTIONS (5)
  - Device issue [Unknown]
  - Cerebrovascular accident [Unknown]
  - Device difficult to use [Unknown]
  - Sight disability [Unknown]
  - Injection site pain [Unknown]
